FAERS Safety Report 19860670 (Version 1)
Quarter: 2021Q3

REPORT INFORMATION
  Report Type: Spontaneous
  Country: US (occurrence: US)
  Receive Date: 20210920
  Receipt Date: 20210920
  Transmission Date: 20211014
  Serious: No
  Sender: FDA-Public Use
  Company Number: US-AMNEAL PHARMACEUTICALS-2021-AMRX-02161

PATIENT
  Age: 22 Year
  Sex: Female
  Weight: 74.83 kg

DRUGS (1)
  1. NORELGESTROMIN/ETHINYL ESTRADIOL TRANSDERMAL SYSTEM [Suspect]
     Active Substance: ETHINYL ESTRADIOL\NORELGESTROMIN
     Indication: CONTRACEPTION
     Dosage: 1 DOSAGE FORM, 1 /WEEK, FOR 21 DAYS
     Route: 062
     Dates: start: 202105, end: 202106

REACTIONS (1)
  - Dermatitis contact [Recovering/Resolving]

NARRATIVE: CASE EVENT DATE: 202105
